FAERS Safety Report 10660654 (Version 1)
Quarter: 2014Q4

REPORT INFORMATION
  Report Type: Spontaneous
  Country: US (occurrence: US)
  Receive Date: 20141217
  Receipt Date: 20141217
  Transmission Date: 20150529
  Serious: No
  Sender: FDA-Public Use
  Company Number: US-GLAXOSMITHKLINE-A1088637A

PATIENT

DRUGS (5)
  1. VOTRIENT [Suspect]
     Active Substance: PAZOPANIB HYDROCHLORIDE
     Indication: RENAL CANCER
     Route: 048
     Dates: start: 20140805
  2. PROMETHAZINE [Concomitant]
     Active Substance: PROMETHAZINE\PROMETHAZINE HYDROCHLORIDE
  3. ALLOPURINOL. [Concomitant]
     Active Substance: ALLOPURINOL
  4. ONDANSETRON [Concomitant]
     Active Substance: ONDANSETRON
  5. MEGESTROL [Concomitant]
     Active Substance: MEGESTROL

REACTIONS (1)
  - Ageusia [Not Recovered/Not Resolved]

NARRATIVE: CASE EVENT DATE: 20140827
